FAERS Safety Report 12287438 (Version 3)
Quarter: 2016Q3

REPORT INFORMATION
  Report Type: Spontaneous
  Country: US (occurrence: US)
  Receive Date: 20160420
  Receipt Date: 20160916
  Transmission Date: 20161109
  Serious: No
  Sender: FDA-Public Use
  Company Number: US-ALKERMES INC.-ALK-2016-000204

PATIENT
  Age: 52 Year
  Sex: Female

DRUGS (1)
  1. ARISTADA [Suspect]
     Active Substance: ARIPIPRAZOLE LAUROXIL
     Indication: SCHIZOPHRENIA
     Dosage: 882 MG, QMO
     Route: 030

REACTIONS (5)
  - Headache [Unknown]
  - Gait disturbance [Unknown]
  - Muscular weakness [Unknown]
  - Weight increased [Unknown]
  - Fall [Unknown]

NARRATIVE: CASE EVENT DATE: 2016
